FAERS Safety Report 11878632 (Version 1)
Quarter: 2015Q4

REPORT INFORMATION
  Report Type: Spontaneous
  Country: CN (occurrence: CN)
  Receive Date: 20151230
  Receipt Date: 20151230
  Transmission Date: 20160305
  Serious: Yes (Other)
  Sender: FDA-Public Use
  Company Number: CN-CELGENE-CHN-2015124093

PATIENT

DRUGS (5)
  1. PACLITAXEL. [Concomitant]
     Active Substance: PACLITAXEL
     Indication: NON-SMALL CELL LUNG CANCER
     Route: 065
  2. DOCETAXEL. [Concomitant]
     Active Substance: DOCETAXEL
     Indication: NON-SMALL CELL LUNG CANCER
     Route: 065
  3. BEVACIZUMAB [Concomitant]
     Active Substance: BEVACIZUMAB
     Indication: NON-SMALL CELL LUNG CANCER
     Route: 065
  4. ABRAXANE [Suspect]
     Active Substance: PACLITAXEL
     Indication: NON-SMALL CELL LUNG CANCER
     Route: 041
  5. CARBOPLATIN. [Concomitant]
     Active Substance: CARBOPLATIN
     Indication: NON-SMALL CELL LUNG CANCER
     Route: 065

REACTIONS (14)
  - Chest discomfort [Unknown]
  - Asthma [Unknown]
  - Hypertension [Unknown]
  - Cough [Unknown]
  - Renal impairment [Unknown]
  - Liver disorder [Unknown]
  - Nasal congestion [Unknown]
  - Rash [Unknown]
  - Bone marrow failure [Unknown]
  - Non-small cell lung cancer [Unknown]
  - Haemoptysis [Unknown]
  - Gastrointestinal disorder [Unknown]
  - Fatigue [Unknown]
  - Cerebral infarction [Unknown]
